FAERS Safety Report 18080907 (Version 1)
Quarter: 2020Q3

REPORT INFORMATION
  Report Type: Spontaneous
  Country: FR (occurrence: FR)
  Receive Date: 20200728
  Receipt Date: 20200728
  Transmission Date: 20201103
  Serious: Yes (Other)
  Sender: FDA-Public Use
  Company Number: FR-PFIZER INC-2020282959

PATIENT
  Age: 20 Year
  Sex: Female

DRUGS (6)
  1. COCAINE [Suspect]
     Active Substance: COCAINE
     Dosage: UNK
     Route: 065
     Dates: start: 2016
  2. CANNABIS [Suspect]
     Active Substance: CANNABIS SATIVA SUBSP. INDICA TOP
     Dosage: UNK
     Route: 055
     Dates: start: 2014
  3. METHYLENEDIOXYMETHAMPHETAMINE [Suspect]
     Active Substance: MIDOMAFETAMINE
     Dosage: UNK
     Route: 065
     Dates: start: 2016
  4. TRAMADOL HCL [Suspect]
     Active Substance: TRAMADOL HYDROCHLORIDE
     Dosage: UNK
     Route: 048
  5. ALPRAZOLAM. [Suspect]
     Active Substance: ALPRAZOLAM
     Dosage: UNK
     Route: 048
  6. LSD [Suspect]
     Active Substance: LYSERGIDE
     Dosage: 25
     Route: 048
     Dates: start: 2017

REACTIONS (2)
  - Memory impairment [Recovered/Resolved]
  - Drug abuse [Not Recovered/Not Resolved]

NARRATIVE: CASE EVENT DATE: 2014
